FAERS Safety Report 16944215 (Version 1)
Quarter: 2019Q4

REPORT INFORMATION
  Report Type: Spontaneous
  Country: US (occurrence: US)
  Receive Date: 20191022
  Receipt Date: 20191022
  Transmission Date: 20200122
  Serious: Yes (Hospitalization)
  Sender: FDA-Public Use
  Company Number: US-ALKEM LABORATORIES LIMITED-US-ALKEM-2019-08831

PATIENT
  Age: 50 Year
  Sex: Male

DRUGS (6)
  1. COGENTIN [Concomitant]
     Active Substance: BENZTROPINE MESYLATE
     Indication: EXTRAPYRAMIDAL DISORDER
     Dosage: 1 MILLIGRAM, BID
     Route: 048
  2. KALETRA [Suspect]
     Active Substance: LOPINAVIR\RITONAVIR
     Indication: ANTIRETROVIRAL THERAPY
     Dosage: 200/50 MG TWICE DIALY
     Route: 065
     Dates: start: 1996
  3. TRIZIVIR [Concomitant]
     Active Substance: ABACAVIR SULFATE\LAMIVUDINE\ZIDOVUDINE
     Indication: ANTIRETROVIRAL THERAPY
     Dosage: 300/150/300 MG TWO TABLETS DAILY
     Route: 065
     Dates: start: 1996
  4. QUETIAPINE FUMARATE. [Suspect]
     Active Substance: QUETIAPINE FUMARATE
     Indication: SCHIZOAFFECTIVE DISORDER
     Dosage: 300 MILLIGRAM THREE TABLETS AT BEDTIME
     Route: 065
  5. COGENTIN [Concomitant]
     Active Substance: BENZTROPINE MESYLATE
     Indication: PROPHYLAXIS
  6. TRILAFON [Suspect]
     Active Substance: PERPHENAZINE
     Indication: SCHIZOAFFECTIVE DISORDER
     Dosage: 8 MILLIGRAM NIGHTLY
     Route: 048

REACTIONS (2)
  - Drug interaction [Unknown]
  - Priapism [Unknown]
